FAERS Safety Report 4530751-X (Version None)
Quarter: 2004Q4

REPORT INFORMATION
  Report Type: 
  Country: None (occurrence: None)
  Receive Date: 20041216
  Receipt Date: 20041201
  Transmission Date: 20050328
  Serious: Yes (Hospitalization, Other)
  Sender: FDA-Public Use
  Company Number: 2004JP001797

PATIENT
  Age: 61 Year
  Sex: Female
  Weight: 38.5 kg

DRUGS (10)
  1. PROGRAF [Suspect]
     Indication: LIVER TRANSPLANT
     Dosage: 3.00 MG, BID, ORAL
     Route: 048
     Dates: start: 20030708
  2. PREDNISOLONE [Concomitant]
  3. CELLCEPT [Concomitant]
  4. OMEPRAL (OMEPRAZOLE) TABLET [Concomitant]
  5. URSO (URSODEOXYCHOLIC ACID) TABLET [Concomitant]
  6. BAKTAR (SULFAMETHOXAZOLE, TRIMETHOPRIM) TABLET [Concomitant]
  7. DIFLUCAN (FLUCONAZOLE) CAPSULE [Concomitant]
  8. MAALOX (MAGNESIUM HYROXIDE, ALUMINIUM HYDROXIDE GEL) POWDER [Concomitant]
  9. ULCERLMIN (SUCRALFATE) POWDER [Concomitant]
  10. ONE-ALPHA (ALFACALCIDOL) TABLET [Concomitant]

REACTIONS (5)
  - BLOOD UREA INCREASED [None]
  - DEHYDRATION [None]
  - PNEUMOCYSTIS CARINII PNEUMONIA [None]
  - RENAL IMPAIRMENT [None]
  - RENAL TUBULAR ACIDOSIS [None]
